FAERS Safety Report 13647758 (Version 1)
Quarter: 2017Q2

REPORT INFORMATION
  Report Type: Spontaneous
  Country: JP (occurrence: JP)
  Receive Date: 20170613
  Receipt Date: 20170613
  Transmission Date: 20170830
  Serious: Yes (Other)
  Sender: FDA-Public Use
  Company Number: JP-PFIZER INC-2017251098

PATIENT
  Sex: Female

DRUGS (2)
  1. ONETRAM [Suspect]
     Active Substance: TRAMADOL HYDROCHLORIDE
     Indication: SCIATICA
     Dosage: UNK
     Route: 048
     Dates: end: 20170602
  2. LYRICA [Suspect]
     Active Substance: PREGABALIN
     Indication: SCIATICA
     Dosage: 75 MG, 2X/DAY (IN THE MORNIGN AND EVENING)
     Route: 048
     Dates: end: 20170602

REACTIONS (12)
  - Hyperhidrosis [Unknown]
  - Dizziness [Unknown]
  - Withdrawal syndrome [Unknown]
  - Suicidal ideation [Unknown]
  - Constipation [Unknown]
  - Intentional product misuse [Unknown]
  - Decreased appetite [Unknown]
  - Hallucination [Unknown]
  - Nausea [Unknown]
  - Pyrexia [Unknown]
  - Anxiety [Unknown]
  - Abdominal discomfort [Unknown]
